FAERS Safety Report 7104699-0 (Version None)
Quarter: 2010Q4

REPORT INFORMATION
  Report Type: 
  Country: None (occurrence: None)
  Receive Date: 20101116
  Receipt Date: 20101110
  Transmission Date: 20110411
  Serious: Yes (Other)
  Sender: FDA-Public Use
  Company Number: US-BAYER-201040670NA

PATIENT
  Sex: Female

DRUGS (1)
  1. YAZ [Suspect]
     Dates: start: 20081001, end: 20090101

REACTIONS (1)
  - GALLBLADDER INJURY [None]
